FAERS Safety Report 15314085 (Version 1)
Quarter: 2018Q3

REPORT INFORMATION
  Report Type: Spontaneous
  Country: US (occurrence: US)
  Receive Date: 20180824
  Receipt Date: 20180824
  Transmission Date: 20181010
  Serious: Yes (Other)
  Sender: FDA-Public Use
  Company Number: US-ACCORD-070971

PATIENT

DRUGS (1)
  1. AMLODIPINE [Suspect]
     Active Substance: AMLODIPINE BESYLATE
     Indication: PAIN

REACTIONS (9)
  - Electrocardiogram QT prolonged [Recovered/Resolved]
  - Somnolence [Unknown]
  - Cardiac murmur [Recovered/Resolved]
  - Off label use [Unknown]
  - Palpitations [Recovered/Resolved]
  - Gingival bleeding [Unknown]
  - Fatigue [Unknown]
  - Dizziness [Recovered/Resolved]
  - Contusion [Unknown]
